FAERS Safety Report 8517352-3 (Version None)
Quarter: 2012Q3

REPORT INFORMATION
  Report Type: 
  Country: None (occurrence: None)
  Receive Date: 20120718
  Receipt Date: 20120710
  Transmission Date: 20120928
  Serious: Yes (Death)
  Sender: FDA-Public Use
  Company Number: JP-JNJFOC-20120613416

PATIENT
  Sex: Male
  Weight: 38 kg

DRUGS (10)
  1. SLOW-K [Suspect]
     Indication: HYPOKALAEMIA
     Route: 048
     Dates: start: 20120606, end: 20120616
  2. BISOPROLOL FUMARATE [Suspect]
     Indication: CARDIAC FAILURE
     Route: 048
     Dates: start: 20120606, end: 20120616
  3. ALDACTONE [Suspect]
     Indication: CARDIAC FAILURE
     Route: 048
     Dates: start: 20120606, end: 20120616
  4. PIMOBENDAN [Suspect]
     Indication: CARDIAC FAILURE
     Dates: start: 20120606, end: 20120616
  5. SITAGLIPTIN PHOSPHATE [Suspect]
     Indication: DIABETES MELLITUS
     Route: 048
     Dates: start: 20120606, end: 20120616
  6. XARELTO [Suspect]
     Indication: CEREBROVASCULAR ACCIDENT PROPHYLAXIS
     Route: 048
     Dates: start: 20120606, end: 20120615
  7. XARELTO [Suspect]
     Indication: ATRIAL FIBRILLATION
     Route: 048
     Dates: start: 20120606, end: 20120615
  8. LANIRAPID [Suspect]
     Indication: CARDIAC FAILURE
     Route: 048
     Dates: start: 20120606, end: 20120616
  9. AMIODARONE HYDROCHLORIDE [Suspect]
     Indication: ARRHYTHMIA
     Route: 048
     Dates: start: 20120606, end: 20120616
  10. DIART [Suspect]
     Indication: CARDIAC FAILURE
     Route: 048
     Dates: start: 20120606, end: 20120616

REACTIONS (2)
  - LUNG NEOPLASM MALIGNANT [None]
  - CARDIO-RESPIRATORY ARREST [None]
